FAERS Safety Report 14685528 (Version 2)
Quarter: 2018Q1

REPORT INFORMATION
  Report Type: Spontaneous
  Country: DE (occurrence: DE)
  Receive Date: 20180327
  Receipt Date: 20180330
  Transmission Date: 20180509
  Serious: Yes (Life-Threatening, Hospitalization)
  Sender: FDA-Public Use
  Company Number: DE-ASTRAZENECA-2018SE37609

PATIENT
  Age: 65 Year
  Sex: Female

DRUGS (4)
  1. AKITA [Concomitant]
  2. SYMBICORT [Suspect]
     Active Substance: BUDESONIDE\FORMOTEROL FUMARATE DIHYDRATE
     Dosage: TWO TIMES A DAY
     Route: 055
     Dates: start: 201701
  3. TIOTROPIUM [Concomitant]
     Active Substance: TIOTROPIUM
     Dates: start: 201509
  4. SYMBICORT [Suspect]
     Active Substance: BUDESONIDE\FORMOTEROL FUMARATE DIHYDRATE
     Dosage: 320/9, TWO TIMES A DAY AND AS REQUIRED.
     Route: 055
     Dates: start: 2012

REACTIONS (1)
  - Asthma [Unknown]

NARRATIVE: CASE EVENT DATE: 2014
